FAERS Safety Report 10693850 (Version 1)
Quarter: 2015Q1

REPORT INFORMATION
  Report Type: Report from Study
  Country: US (occurrence: US)
  Receive Date: 20150106
  Receipt Date: 20150106
  Transmission Date: 20150721
  Serious: Yes (Hospitalization, Other)
  Sender: FDA-Public Use
  Company Number: US-GLAXOSMITHKLINE-US2014GSK004539

PATIENT
  Age: 56 Year
  Sex: Female
  Weight: 75 kg

DRUGS (5)
  1. BLINDED LAPATINIB TOSILATE [Suspect]
     Active Substance: LAPATINIB DITOSYLATE
     Indication: NEOPLASM MALIGNANT
     Dosage: UNK
     Route: 048
     Dates: start: 20140915, end: 20140918
  2. PLACEBO [Suspect]
     Active Substance: UNSPECIFIED INGREDIENT
     Indication: NEOPLASM MALIGNANT
     Dosage: UNK
     Route: 048
     Dates: start: 20140915, end: 20140918
  3. BLINDED LAPATINIB TOSILATE [Suspect]
     Active Substance: LAPATINIB DITOSYLATE
     Indication: NEOPLASM MALIGNANT
     Dosage: UNK
     Route: 048
     Dates: start: 20140915, end: 20140918
  4. LOPERAMIDE [Concomitant]
     Active Substance: LOPERAMIDE
     Indication: NEOPLASM MALIGNANT
     Dosage: 4 MG, QD
     Dates: start: 20140915, end: 20140918
  5. BLINDED LAPATINIB TOSILATE [Suspect]
     Active Substance: LAPATINIB DITOSYLATE
     Indication: NEOPLASM MALIGNANT
     Dosage: UNK
     Route: 048
     Dates: start: 20140915, end: 20140918

REACTIONS (1)
  - Hyperbilirubinaemia [Recovered/Resolved]

NARRATIVE: CASE EVENT DATE: 20140929
